FAERS Safety Report 6178915-6 (Version None)
Quarter: 2009Q2

REPORT INFORMATION
  Report Type: 
  Country: None (occurrence: None)
  Receive Date: 20090505
  Receipt Date: 20090424
  Transmission Date: 20091009
  Serious: Yes (Other)
  Sender: FDA-Public Use
  Company Number: US-PFIZER INC-2005094814

PATIENT
  Sex: Female
  Weight: 73 kg

DRUGS (4)
  1. PROVERA [Suspect]
     Indication: HORMONE REPLACEMENT THERAPY
     Dosage: 10 MG, 1X/DAY
     Route: 048
     Dates: start: 19871230, end: 19901218
  2. PROVERA [Suspect]
     Dosage: 5 MG, 1X/DAY
     Route: 048
     Dates: start: 19901218, end: 19970601
  3. PREMARIN [Suspect]
     Indication: HORMONE REPLACEMENT THERAPY
     Dosage: 0.9 UNK, 1X/DAY
     Route: 065
     Dates: start: 19871230, end: 19901218
  4. PREMARIN [Suspect]
     Dosage: 1.25 UNK, 1X/DAY
     Route: 065
     Dates: start: 19901218, end: 19970601

REACTIONS (1)
  - BREAST CANCER [None]
